FAERS Safety Report 23764944 (Version 2)
Quarter: 2024Q2

REPORT INFORMATION
  Report Type: Report from Study
  Country: CH (occurrence: CH)
  Receive Date: 20240420
  Receipt Date: 20240506
  Transmission Date: 20240715
  Serious: Yes (Hospitalization)
  Sender: FDA-Public Use
  Company Number: CH-ABBVIE-5422994

PATIENT
  Sex: Female

DRUGS (6)
  1. CARBIDOPA\LEVODOPA [Suspect]
     Active Substance: CARBIDOPA\LEVODOPA
     Indication: Parkinson^s disease
     Dosage: MD: 7.0 ML, CRD: 4.2 ML/H, CRN: 2.2 ML/H, ED: 1.0 ML?FREQUENCY TEXT: 24H THERAPY
     Route: 050
     Dates: start: 20230707, end: 20230714
  2. CARBIDOPA\LEVODOPA [Suspect]
     Active Substance: CARBIDOPA\LEVODOPA
     Dosage: MD: 10.0 ML, CRD: 4.2 ML/H, CRN: 2.2 ML/H, ED: 1.0 ML?FREQUENCY TEXT: 24H THERAPY
     Route: 050
     Dates: start: 20230814, end: 20230914
  3. CARBIDOPA\LEVODOPA [Suspect]
     Active Substance: CARBIDOPA\LEVODOPA
     Dosage: MD: 8.0 ML, CRD: 4.1 ML/H, ED: 1.0 ML?FREQUENCY TEXT: 16H THERAPY
     Route: 050
     Dates: start: 20230922, end: 20240416
  4. CARBIDOPA\LEVODOPA [Suspect]
     Active Substance: CARBIDOPA\LEVODOPA
     Dosage: MD: 6.0 ML, CRD: 3.8 ML/H, CRN: 1.8 ML/H, ED: 1.0 ML?FREQUENCY TEXT: 24H THERAPY
     Route: 050
     Dates: start: 20230705, end: 20230707
  5. CARBIDOPA\LEVODOPA [Suspect]
     Active Substance: CARBIDOPA\LEVODOPA
     Dosage: MD: 8.0 ML, CRD: 4.1 ML/H, CRN: 0.0 ML/H, ED: 1.0 ML?FREQUENCY TEXT: 16H THERAPY
     Route: 050
     Dates: start: 20230914, end: 20230922
  6. CARBIDOPA\LEVODOPA [Suspect]
     Active Substance: CARBIDOPA\LEVODOPA
     Dosage: MD: 8.0 ML, CRD: 4.3 ML/H, ED: 1.0 ML, 16H THERAPY
     Route: 050
     Dates: start: 20240416

REACTIONS (12)
  - Rehabilitation therapy [Not Recovered/Not Resolved]
  - On and off phenomenon [Recovering/Resolving]
  - Device issue [Recovered/Resolved]
  - Stoma site hypergranulation [Recovered/Resolved]
  - Akinesia [Recovering/Resolving]
  - Stoma site erythema [Recovering/Resolving]
  - Stoma site discharge [Not Recovered/Not Resolved]
  - Therapeutic product effect variable [Recovering/Resolving]
  - Stoma site hypergranulation [Recovered/Resolved]
  - Stoma site hypergranulation [Recovered/Resolved]
  - Hypokinesia [Recovering/Resolving]
  - Dyskinesia [Recovering/Resolving]

NARRATIVE: CASE EVENT DATE: 20230101
